FAERS Safety Report 11775207 (Version 2)
Quarter: 2015Q4

REPORT INFORMATION
  Report Type: Spontaneous
  Country: US (occurrence: US)
  Receive Date: 20151124
  Receipt Date: 20151208
  Transmission Date: 20160304
  Serious: No
  Sender: FDA-Public Use
  Company Number: US-ASTRAZENECA-2015SF07131

PATIENT
  Sex: Male
  Weight: 22.7 kg

DRUGS (6)
  1. ALBUTEROL. [Concomitant]
     Active Substance: ALBUTEROL
     Indication: COUGH
     Dosage: AS REQUIRED
     Route: 055
  2. ALBUTEROL. [Concomitant]
     Active Substance: ALBUTEROL
     Indication: WHEEZING
     Dosage: AS REQUIRED
     Route: 055
  3. PULMICORT FLEXHALER [Suspect]
     Active Substance: BUDESONIDE
     Indication: CROUP INFECTIOUS
     Route: 055
  4. ALBUTEROL. [Concomitant]
     Active Substance: ALBUTEROL
     Indication: CHOKING
     Dosage: AS REQUIRED
     Route: 055
  5. ZYRTEC [Concomitant]
     Active Substance: CETIRIZINE HYDROCHLORIDE
     Indication: HYPERSENSITIVITY
     Route: 048
  6. VITAMINS NOS [Concomitant]
     Active Substance: VITAMINS

REACTIONS (7)
  - Drug administered to patient of inappropriate age [Unknown]
  - Drug dose omission [Unknown]
  - Product quality issue [Unknown]
  - Inappropriate schedule of drug administration [Unknown]
  - Product use issue [Unknown]
  - Cough [Unknown]
  - Off label use [Unknown]

NARRATIVE: CASE EVENT DATE: 2015
